FAERS Safety Report 12011075 (Version 2)
Quarter: 2016Q1

REPORT INFORMATION
  Report Type: Spontaneous
  Country: US (occurrence: US)
  Receive Date: 20160205
  Receipt Date: 20160215
  Transmission Date: 20160526
  Serious: No
  Sender: FDA-Public Use
  Company Number: US-BAYER-2016-020899

PATIENT
  Age: 30 Year
  Sex: Female
  Weight: 54.42 kg

DRUGS (3)
  1. ALEVE [Suspect]
     Active Substance: NAPROXEN SODIUM
     Indication: MYALGIA
  2. ALEVE [Suspect]
     Active Substance: NAPROXEN SODIUM
     Indication: NECK PAIN
  3. ALEVE [Suspect]
     Active Substance: NAPROXEN SODIUM
     Indication: HEADACHE
     Dosage: 1 DF, FOR A FEW YEARS

REACTIONS (2)
  - Product use issue [None]
  - Drug ineffective [None]
